FAERS Safety Report 20417690 (Version 2)
Quarter: 2022Q1

REPORT INFORMATION
  Report Type: Spontaneous
  Country: JP (occurrence: JP)
  Receive Date: 20220202
  Receipt Date: 20220308
  Transmission Date: 20220423
  Serious: Yes (Other)
  Sender: FDA-Public Use
  Company Number: JP-GSKJP-JP2022JPN013339

PATIENT
  Sex: Male

DRUGS (2)
  1. BOTOX [Suspect]
     Active Substance: ONABOTULINUMTOXINA
     Indication: Hypertonic bladder
     Dosage: 100 UNITS, SINGLE
     Dates: start: 20220105, end: 20220105
  2. BOTOX [Suspect]
     Active Substance: ONABOTULINUMTOXINA
     Indication: Urge incontinence

REACTIONS (2)
  - Urinary retention [Not Recovered/Not Resolved]
  - Residual urine volume increased [Unknown]

NARRATIVE: CASE EVENT DATE: 20220101
